FAERS Safety Report 9666024 (Version 3)
Quarter: 2013Q4

REPORT INFORMATION
  Report Type: Spontaneous
  Country: KW (occurrence: KW)
  Receive Date: 20131104
  Receipt Date: 20131211
  Transmission Date: 20140711
  Serious: Yes (Hospitalization)
  Sender: FDA-Public Use
  Company Number: KW-BIOGENIDEC-2013BI090611

PATIENT
  Age: 28 Year
  Sex: Male

DRUGS (1)
  1. TYSABRI [Suspect]
     Indication: MULTIPLE SCLEROSIS
     Route: 042
     Dates: start: 201301, end: 201309

REACTIONS (3)
  - Multiple sclerosis relapse [Unknown]
  - Disorientation [Unknown]
  - Drug ineffective [Unknown]
